FAERS Safety Report 9822699 (Version 1)
Quarter: 2014Q1

REPORT INFORMATION
  Report Type: Report from Study
  Country: NL (occurrence: NL)
  Receive Date: 20140116
  Receipt Date: 20140116
  Transmission Date: 20141002
  Serious: Yes (Hospitalization)
  Sender: FDA-Public Use
  Company Number: NL-ROCHE-1332773

PATIENT
  Age: 59 Year
  Sex: Male

DRUGS (5)
  1. EPIRUBICIN [Suspect]
     Indication: GASTRIC CANCER
     Route: 042
     Dates: start: 20131125, end: 20131216
  2. CAPECITABINE [Suspect]
     Indication: GASTRIC CANCER
     Route: 048
     Dates: start: 20131125, end: 20131226
  3. ITRACONAZOL [Concomitant]
     Route: 065
     Dates: start: 20131119
  4. LOPERAMIDE [Concomitant]
     Route: 065
     Dates: start: 20131119
  5. METOCLOPRAMIDE [Concomitant]
     Route: 065
     Dates: start: 20131126

REACTIONS (2)
  - Diarrhoea [Recovered/Resolved]
  - Mucosal inflammation [Recovered/Resolved]
